FAERS Safety Report 9008420 (Version 1)
Quarter: 2012Q4

REPORT INFORMATION
  Report Type: Spontaneous
  Country: US (occurrence: None)
  Receive Date: 20121227
  Receipt Date: 20121227
  Transmission Date: 20130627
  Serious: Yes (Hospitalization, Other)
  Sender: FDA-Public Use
  Company Number: JPI-P-027703

PATIENT
  Age: 54 Year
  Sex: Female
  Weight: 66.68 kg

DRUGS (1)
  1. XYREM (500 MILLIGRAM/MILLILITERS, SOLUTION) (SODIUM OXYBATE) [Suspect]
     Indication: INSOMNIA
     Dates: start: 20070503

REACTIONS (14)
  - Intervertebral disc protrusion [None]
  - Device dislocation [None]
  - Sleep apnoea syndrome [None]
  - Weight increased [None]
  - Dysphagia [None]
  - Eczema [None]
  - Migraine [None]
  - Arthralgia [None]
  - Arthritis [None]
  - Rhinitis allergic [None]
  - Therapeutic response decreased [None]
  - Visual impairment [None]
  - Rash [None]
  - Adverse event [None]
